FAERS Safety Report 19704770 (Version 5)
Quarter: 2021Q4

REPORT INFORMATION
  Report Type: Spontaneous
  Country: JP (occurrence: JP)
  Receive Date: 20210816
  Receipt Date: 20211217
  Transmission Date: 20220303
  Serious: Yes (Death, Hospitalization, Other)
  Sender: FDA-Public Use
  Company Number: JP-CHUGAI-2021009304

PATIENT
  Age: 62 Year
  Sex: Male
  Weight: 81.2 kg

DRUGS (8)
  1. TECENTRIQ [Suspect]
     Active Substance: ATEZOLIZUMAB
     Indication: Hepatocellular carcinoma
     Route: 041
     Dates: start: 20210713, end: 20210713
  2. AVASTIN [Suspect]
     Active Substance: BEVACIZUMAB
     Indication: Hepatocellular carcinoma
     Route: 041
     Dates: start: 20210713, end: 20210713
  3. TENELIGLIPTIN [Concomitant]
     Active Substance: TENELIGLIPTIN
     Dosage: 20 MILLIGRAM, QD
     Route: 048
  4. CANAGLIFLOZIN [Concomitant]
     Active Substance: CANAGLIFLOZIN
     Dosage: 100 MILLIGRAM, QD
     Route: 048
  5. NEXIUM [Concomitant]
     Active Substance: ESOMEPRAZOLE MAGNESIUM
     Dosage: 20 MILLIGRAM, QD
     Route: 048
  6. METFORMIN HYDROCHLORIDE [Concomitant]
     Active Substance: METFORMIN HYDROCHLORIDE
     Dosage: 500 MILLIGRAM, BID
  7. CANDESARTAN [Concomitant]
     Active Substance: CANDESARTAN
     Dosage: 4 MILLIGRAM, QD
     Route: 048
     Dates: start: 20210716
  8. INSULIN NOS [Concomitant]
     Active Substance: INSULIN NOS
     Indication: Diabetes mellitus
     Dosage: UNK
     Route: 065
     Dates: start: 20210906

REACTIONS (16)
  - Encephalitis autoimmune [Fatal]
  - Pneumonia aspiration [Unknown]
  - Pneumonia [Unknown]
  - Pseudomonal bacteraemia [Unknown]
  - Systemic candida [Unknown]
  - Disseminated intravascular coagulation [Unknown]
  - Rectal ulcer [Unknown]
  - Pneumothorax [Recovering/Resolving]
  - Sepsis [Unknown]
  - Myositis [Unknown]
  - C-reactive protein increased [Unknown]
  - Liver disorder [Unknown]
  - Hypertension [Unknown]
  - Device related infection [Unknown]
  - Hypoalbuminaemia [Unknown]
  - Acute kidney injury [Unknown]

NARRATIVE: CASE EVENT DATE: 20210727
